FAERS Safety Report 5491519-3 (Version None)
Quarter: 2007Q4

REPORT INFORMATION
  Report Type: 
  Country: None (occurrence: None)
  Receive Date: 20071022
  Receipt Date: 20071017
  Transmission Date: 20080405
  Serious: Yes (Death, Life-Threatening)
  Sender: FDA-Public Use
  Company Number: PHBS2007JP16159

PATIENT
  Age: 23 Year
  Sex: Male
  Weight: 74 kg

DRUGS (5)
  1. ANAFRANIL [Suspect]
     Route: 048
  2. LUDIOMIL [Suspect]
     Indication: DEPRESSION
     Route: 048
  3. TRYPTANOL                               /AUS/ [Suspect]
     Route: 048
  4. AMOXAPINE [Suspect]
     Route: 048
  5. TOLEDOMIN [Suspect]

REACTIONS (12)
  - ANTIDEPRESSANT DRUG LEVEL ABOVE THERAPEUTIC [None]
  - BODY TEMPERATURE INCREASED [None]
  - CARDIO-RESPIRATORY ARREST [None]
  - CONVULSION [None]
  - DRUG SCREEN POSITIVE [None]
  - DRUG TOXICITY [None]
  - HYPERPYREXIA [None]
  - MULTIPLE DRUG OVERDOSE [None]
  - PSYCHOMOTOR HYPERACTIVITY [None]
  - PULMONARY CONGESTION [None]
  - PULMONARY OEDEMA [None]
  - RHABDOMYOLYSIS [None]
